FAERS Safety Report 9125981 (Version 1)
Quarter: 2013Q1

REPORT INFORMATION
  Report Type: Spontaneous
  Country: US (occurrence: US)
  Receive Date: 20130117
  Receipt Date: 20130117
  Transmission Date: 20140127
  Serious: Yes (Death)
  Sender: FDA-Public Use
  Company Number: US-SANOFI-AVENTIS-2013SA000871

PATIENT
  Age: 61 Year
  Sex: Female

DRUGS (1)
  1. ELOXATIN [Suspect]
     Route: 041

REACTIONS (1)
  - Death [Fatal]
